FAERS Safety Report 24717933 (Version 1)
Quarter: 2024Q4

REPORT INFORMATION
  Report Type: Spontaneous
  Country: CO (occurrence: CO)
  Receive Date: 20241210
  Receipt Date: 20241210
  Transmission Date: 20250115
  Serious: Yes (Other)
  Sender: SANDOZ
  Company Number: CO-002147023-NVSC2024CO232646

PATIENT
  Age: 82 Year
  Sex: Male
  Weight: 68 kg

DRUGS (1)
  1. EXELON [Suspect]
     Active Substance: RIVASTIGMINE TARTRATE
     Indication: Dementia Alzheimer^s type
     Dosage: 1 DOSAGE FORM, (9MG PATCH) QD
     Route: 048
     Dates: start: 20240904

REACTIONS (3)
  - Rectal haemorrhage [Recovered/Resolved]
  - Haematuria [Recovered/Resolved]
  - Tinea versicolour [Recovering/Resolving]

NARRATIVE: CASE EVENT DATE: 20241001
